FAERS Safety Report 21614508 (Version 1)
Quarter: 2022Q4

REPORT INFORMATION
  Report Type: Spontaneous
  Country: US (occurrence: US)
  Receive Date: 20221118
  Receipt Date: 20221118
  Transmission Date: 20230113
  Serious: No
  Sender: FDA-Public Use
  Company Number: US-BAYER-2022A151286

PATIENT
  Sex: Female

DRUGS (1)
  1. MENOSTAR [Suspect]
     Active Substance: ESTRADIOL
     Dosage: 14 MCG PER DAY
     Route: 062
     Dates: end: 20221027

REACTIONS (2)
  - Device adhesion issue [None]
  - Wrong technique in product usage process [None]
